FAERS Safety Report 4985905-5 (Version None)
Quarter: 2006Q2

REPORT INFORMATION
  Report Type: 
  Country: None (occurrence: None)
  Receive Date: 20060421
  Receipt Date: 20060413
  Transmission Date: 20061013
  Serious: Yes (Hospitalization)
  Sender: FDA-Public Use
  Company Number: 200610517BYL

PATIENT
  Age: 66 Year
  Sex: Male

DRUGS (3)
  1. AVELOX [Suspect]
     Indication: BRONCHITIS
     Dosage: 400 MG QD, ORAL
     Route: 048
     Dates: start: 20060327, end: 20060331
  2. EPHEDRA TEAS [Concomitant]
  3. TOCLASE [Concomitant]

REACTIONS (1)
  - FAECES DISCOLOURED [None]
